FAERS Safety Report 6930109-X (Version None)
Quarter: 2010Q3

REPORT INFORMATION
  Report Type: 
  Country: None (occurrence: None)
  Receive Date: 20100818
  Receipt Date: 20090727
  Transmission Date: 20110219
  Serious: No
  Sender: FDA-Public Use
  Company Number: US-ASTRAZENECA-2009SE06074

PATIENT
  Sex: Female

DRUGS (3)
  1. IRESSA [Suspect]
     Route: 048
     Dates: start: 20061001, end: 20080501
  2. IRESSA [Suspect]
     Route: 048
     Dates: start: 20090501
  3. TARCEVA [Suspect]
     Dates: start: 20080501, end: 20090401

REACTIONS (1)
  - AMNESIA [None]
